FAERS Safety Report 8770586 (Version 3)
Quarter: 2013Q4

REPORT INFORMATION
  Report Type: Spontaneous
  Country: GB (occurrence: GB)
  Receive Date: 20120906
  Receipt Date: 20131106
  Transmission Date: 20140711
  Serious: Yes (Other)
  Sender: FDA-Public Use
  Company Number: GB-009507513-1206USA00011

PATIENT
  Age: 68 Year
  Sex: Female
  Weight: 78 kg

DRUGS (7)
  1. COZAAR 50 MG [Suspect]
     Indication: HYPERTENSION
     Dosage: 50 MG, QD
     Route: 048
     Dates: start: 200811, end: 200904
  2. BENDROFLUMETHIAZIDE [Concomitant]
     Indication: HYPERTENSION
     Dosage: 2.5 MG, UNK
  3. BENDROFLUMETHIAZIDE [Concomitant]
     Indication: EYE PAIN
  4. BENDROFLUMETHIAZIDE [Concomitant]
     Indication: PHOTOSENSITIVITY REACTION
  5. RAMIPRIL [Concomitant]
     Indication: HYPERTENSION
     Dosage: 10 MG, UNK
  6. RAMIPRIL [Concomitant]
     Indication: EYE PAIN
  7. RAMIPRIL [Concomitant]
     Indication: PHOTOSENSITIVITY REACTION

REACTIONS (2)
  - Dry eye [Recovered/Resolved]
  - Vital dye staining cornea present [Recovered/Resolved]
